FAERS Safety Report 14548206 (Version 2)
Quarter: 2018Q1

REPORT INFORMATION
  Report Type: Spontaneous
  Country: LT (occurrence: LT)
  Receive Date: 20180219
  Receipt Date: 20180313
  Transmission Date: 20180509
  Serious: Yes (Other)
  Sender: FDA-Public Use
  Company Number: LT-MYLANLABS-2018M1010705

PATIENT
  Sex: Female
  Weight: 2.47 kg

DRUGS (14)
  1. METRONIDAZOLE. [Suspect]
     Active Substance: METRONIDAZOLE
     Indication: AMNIOTIC CAVITY INFECTION
     Dosage: UNK
     Route: 064
     Dates: start: 20170903
  2. HEPARIN [Suspect]
     Active Substance: HEPARIN SODIUM
     Indication: THROMBOSIS PROPHYLAXIS
     Dosage: 0.4 ML, UNK
     Route: 064
  3. DICLOFENAC [Suspect]
     Active Substance: DICLOFENAC
     Indication: URINARY TRACT INFECTION
     Dosage: 100 MG, QD
     Route: 064
     Dates: start: 20170814
  4. GENTAMICIN. [Suspect]
     Active Substance: GENTAMICIN
     Indication: AMNIOTIC CAVITY INFECTION
     Dosage: UNK
     Route: 064
     Dates: start: 20170903
  5. MAGNESIUM [Suspect]
     Active Substance: MAGNESIUM
     Indication: PRODUCT USED FOR UNKNOWN INDICATION
     Dosage: UNK
     Route: 064
  6. DEXAMETHASONE. [Suspect]
     Active Substance: DEXAMETHASONE
     Indication: MATERNAL THERAPY TO ENHANCE FOETAL LUNG MATURITY
     Dosage: UNK
     Route: 064
     Dates: start: 20170816
  7. HEPARIN [Suspect]
     Active Substance: HEPARIN SODIUM
     Dosage: 60 MG, QD
     Route: 064
     Dates: start: 20170815, end: 20170825
  8. MEROPENEM. [Suspect]
     Active Substance: MEROPENEM
     Dosage: UNK
     Dates: start: 20170815, end: 20170825
  9. CEFAZOLIN [Suspect]
     Active Substance: CEFAZOLIN
     Indication: AMNIOTIC CAVITY INFECTION
     Dosage: UNK
     Route: 064
     Dates: start: 20170903
  10. NITROFURANTOIN. [Suspect]
     Active Substance: NITROFURANTOIN
     Indication: URINARY TRACT INFECTION
     Dosage: 100 MG, BID
     Route: 064
     Dates: start: 20170814
  11. NITROFURANTOIN. [Suspect]
     Active Substance: NITROFURANTOIN
     Indication: ABDOMINAL PAIN
  12. MEROPENEM. [Suspect]
     Active Substance: MEROPENEM
     Indication: PERITONITIS
     Dosage: 1 G, TID
     Route: 064
  13. FENTANYL. [Suspect]
     Active Substance: FENTANYL
     Indication: LABOUR PAIN
     Dosage: UNK
     Route: 064
     Dates: start: 20170903
  14. DICLOFENAC [Suspect]
     Active Substance: DICLOFENAC
     Indication: ABDOMINAL PAIN

REACTIONS (2)
  - Foetal exposure during pregnancy [Unknown]
  - Premature baby [Unknown]

NARRATIVE: CASE EVENT DATE: 20170903
